FAERS Safety Report 7240592-0 (Version None)
Quarter: 2011Q1

REPORT INFORMATION
  Report Type: 
  Country: None (occurrence: None)
  Receive Date: 20110124
  Receipt Date: 20110113
  Transmission Date: 20110831
  Serious: Yes (Hospitalization)
  Sender: FDA-Public Use
  Company Number: US-NOVOPROD-321560

PATIENT
  Sex: Female
  Weight: 76.19 kg

DRUGS (6)
  1. NOVOLOG [Suspect]
     Indication: TYPE 1 DIABETES MELLITUS
     Dosage: 1.5 U, UNK
     Route: 058
  2. LANTUS [Concomitant]
     Indication: TYPE 1 DIABETES MELLITUS
     Dosage: 14 U, QD
  3. LEVOTHYROXINE SODIUM [Concomitant]
     Indication: HYPOTHYROIDISM
  4. LOTENSIN                           /00498401/ [Concomitant]
     Indication: HYPERTENSION
  5. WELCHOL [Concomitant]
     Indication: BLOOD CHOLESTEROL INCREASED
     Dosage: UNK
  6. ZYRTEC [Concomitant]
     Indication: HYPERSENSITIVITY
     Dosage: UNK

REACTIONS (5)
  - ANOSMIA [None]
  - FALL [None]
  - TRAUMATIC BRAIN INJURY [None]
  - HYPOGLYCAEMIC UNCONSCIOUSNESS [None]
  - AGEUSIA [None]
